FAERS Safety Report 22295782 (Version 1)
Quarter: 2023Q2

REPORT INFORMATION
  Report Type: Spontaneous
  Country: US (occurrence: None)
  Receive Date: 20230505
  Receipt Date: 20230505
  Transmission Date: 20230722
  Serious: Yes (Other)
  Sender: FDA-Public Use
  Company Number: None

PATIENT
  Sex: Male
  Weight: 80.29 kg

DRUGS (1)
  1. TRUVADA [Suspect]
     Active Substance: EMTRICITABINE\TENOFOVIR DISOPROXIL FUMARATE
     Indication: Diarrhoea
     Dosage: OTHER QUANTITY : 200/300MG;?FREQUENCY : DAILY;?
     Route: 048
     Dates: start: 20210822, end: 20210922

REACTIONS (1)
  - Diarrhoea [None]
